FAERS Safety Report 4707046-4 (Version None)
Quarter: 2005Q3

REPORT INFORMATION
  Report Type: 
  Country: None (occurrence: None)
  Receive Date: 20050701
  Receipt Date: 20050623
  Transmission Date: 20060218
  Serious: Yes (Other)
  Sender: FDA-Public Use
  Company Number: EM2005-0302

PATIENT
  Sex: Male

DRUGS (2)
  1. MACROLIN [Suspect]
     Indication: HIV INFECTION
     Dates: start: 20050107, end: 20050114
  2. MACROLIN [Suspect]
     Indication: HIV INFECTION
     Dates: start: 20050201

REACTIONS (2)
  - ANGIONEUROTIC OEDEMA [None]
  - FATIGUE [None]
